FAERS Safety Report 10103544 (Version 2)
Quarter: 2014Q2

REPORT INFORMATION
  Report Type: Spontaneous
  Country: US (occurrence: US)
  Receive Date: 20140424
  Receipt Date: 20140620
  Transmission Date: 20141212
  Serious: No
  Sender: FDA-Public Use
  Company Number: US-BRISTOL-MYERS SQUIBB COMPANY-20544813

PATIENT
  Age: 90 Year
  Sex: Female

DRUGS (5)
  1. ELIQUIS [Suspect]
     Dosage: THERAPY ON 6MAR14?ONG
     Dates: start: 2014
  2. DILTIAZEM HCL [Concomitant]
  3. DIGOXIN [Concomitant]
  4. ATORVASTATIN [Concomitant]
  5. MULTAQ [Concomitant]

REACTIONS (3)
  - Nausea [Unknown]
  - Diarrhoea [Unknown]
  - Gastroenteritis [Unknown]
